FAERS Safety Report 4390535-2 (Version None)
Quarter: 2004Q2

REPORT INFORMATION
  Report Type: 
  Country: None (occurrence: None)
  Receive Date: 20040630
  Receipt Date: 20040615
  Transmission Date: 20050107
  Serious: Yes (Hospitalization)
  Sender: FDA-Public Use
  Company Number: 2003IM000105

PATIENT
  Age: 57 Year
  Sex: Male
  Weight: 104.3273 kg

DRUGS (5)
  1. ACTIMMUNE [Suspect]
     Indication: PULMONARY FIBROSIS
     Dosage: 200 UG; TIW; SUBCUTANEOUS
     Route: 058
     Dates: start: 20021106
  2. PREVACID [Concomitant]
  3. PREDNISONE [Concomitant]
  4. FLUTICASONE PROPIONATE [Concomitant]
  5. VOLTAREN [Concomitant]

REACTIONS (1)
  - PNEUMONIA [None]
